FAERS Safety Report 10170222 (Version 2)
Quarter: 2014Q2

REPORT INFORMATION
  Report Type: Report from Study
  Country: US (occurrence: US)
  Receive Date: 20140513
  Receipt Date: 20140515
  Transmission Date: 20141212
  Serious: Yes (Hospitalization)
  Sender: FDA-Public Use
  Company Number: US-ABBVIE-14P-163-1234248-00

PATIENT
  Age: 25 Year
  Sex: Male
  Weight: 62.65 kg

DRUGS (5)
  1. HUMIRA [Suspect]
     Indication: COLITIS ULCERATIVE
     Dates: start: 201212, end: 201301
  2. HUMIRA [Suspect]
     Dates: start: 201301, end: 201308
  3. TACROLIMUS [Concomitant]
     Indication: LIVER TRANSPLANT
  4. ASACOL [Concomitant]
     Indication: PRODUCT USED FOR UNKNOWN INDICATION
  5. MYFORTIC [Concomitant]
     Indication: LIVER TRANSPLANT

REACTIONS (3)
  - Peritonitis [Recovered/Resolved]
  - Drug effect incomplete [Recovered/Resolved]
  - Abdominal pain [Recovered/Resolved]
